FAERS Safety Report 25923247 (Version 1)
Quarter: 2025Q4

REPORT INFORMATION
  Report Type: Spontaneous
  Country: IN (occurrence: IN)
  Receive Date: 20251015
  Receipt Date: 20251015
  Transmission Date: 20260118
  Serious: Yes (Hospitalization)
  Sender: ROCHE
  Company Number: IN-ROCHE-10000407269

PATIENT
  Age: 32 Year
  Sex: Male

DRUGS (2)
  1. XELODA [Suspect]
     Active Substance: CAPECITABINE
     Indication: Product used for unknown indication
     Route: 048
  2. AVASTIN [Suspect]
     Active Substance: BEVACIZUMAB
     Indication: Colorectal cancer
     Route: 065

REACTIONS (15)
  - Haematochezia [Unknown]
  - Dyschezia [Unknown]
  - Pyrexia [Unknown]
  - Escherichia infection [Unknown]
  - Flank pain [Unknown]
  - Stent malfunction [Unknown]
  - TP53 gene mutation [Unknown]
  - Bladder hypertrophy [Unknown]
  - Abdominal pain upper [Unknown]
  - Gastrointestinal hypomotility [Unknown]
  - Soft tissue mass [Unknown]
  - Metabolic disorder [Unknown]
  - Bladder hypertrophy [Unknown]
  - Prostatic disorder [Unknown]
  - Seminal vesicular disorder [Unknown]

NARRATIVE: CASE EVENT DATE: 20240326
